FAERS Safety Report 19595338 (Version 1)
Quarter: 2021Q3

REPORT INFORMATION
  Report Type: Spontaneous
  Country: IE (occurrence: IE)
  Receive Date: 20210723
  Receipt Date: 20210723
  Transmission Date: 20211014
  Serious: Yes (Other)
  Sender: FDA-Public Use
  Company Number: IE-AMGEN-IRLSP2021090645

PATIENT
  Sex: Female

DRUGS (1)
  1. PROLIA [Suspect]
     Active Substance: DENOSUMAB
     Indication: OSTEOPOROSIS
     Dosage: UNK, Q6MO
     Route: 065
     Dates: start: 201811

REACTIONS (7)
  - Gingival pain [Unknown]
  - Hypoaesthesia [Unknown]
  - Oral discharge [Unknown]
  - Procedural pain [Not Recovered/Not Resolved]
  - Tooth disorder [Unknown]
  - Impaired healing [Recovering/Resolving]
  - Swelling face [Unknown]

NARRATIVE: CASE EVENT DATE: 2020
